FAERS Safety Report 15125893 (Version 2)
Quarter: 2018Q3

REPORT INFORMATION
  Report Type: Spontaneous
  Country: US (occurrence: US)
  Receive Date: 20180710
  Receipt Date: 20180807
  Transmission Date: 20181010
  Serious: Yes (Other)
  Sender: FDA-Public Use
  Company Number: US-AKORN PHARMACEUTICALS-2018AKN00980

PATIENT
  Age: 12 Year
  Sex: Male
  Weight: 92.8 kg

DRUGS (14)
  1. FLUOXETINE [Concomitant]
     Active Substance: FLUOXETINE HYDROCHLORIDE
  2. IPRATROPIUM [Concomitant]
     Active Substance: IPRATROPIUM
  3. VITAMIN E [Concomitant]
     Active Substance: .ALPHA.-TOCOPHEROL
  4. MYORISAN [Suspect]
     Active Substance: ISOTRETINOIN
     Indication: ACNE
     Dosage: 30 MG, 1X/DAY
     Route: 048
     Dates: start: 20171129, end: 20171229
  5. ALBUTEROL. [Concomitant]
     Active Substance: ALBUTEROL
  6. MYORISAN [Suspect]
     Active Substance: ISOTRETINOIN
     Indication: ACNE
     Dosage: UNK
     Dates: start: 20170929
  7. MYORISAN [Suspect]
     Active Substance: ISOTRETINOIN
     Dosage: 60 MG, 1X/DAY
     Route: 048
     Dates: start: 20180124, end: 2018
  8. FLOVENT [Concomitant]
     Active Substance: FLUTICASONE PROPIONATE
  9. FISH OIL [Concomitant]
     Active Substance: FISH OIL
  10. MYORISAN [Suspect]
     Active Substance: ISOTRETINOIN
     Indication: ACNE
     Dosage: 40 MG, 1X/DAY
     Route: 048
     Dates: start: 20171229, end: 20180124
  11. MODAFINIL. [Concomitant]
     Active Substance: MODAFINIL
  12. COQ [Concomitant]
  13. MYORISAN [Suspect]
     Active Substance: ISOTRETINOIN
     Indication: ACNE
     Dosage: UNK
     Dates: start: 20171026
  14. SOMATROPIN. [Concomitant]
     Active Substance: SOMATROPIN

REACTIONS (3)
  - Anger [Unknown]
  - Mood altered [Unknown]
  - Off label use [Recovered/Resolved]

NARRATIVE: CASE EVENT DATE: 20171129
